FAERS Safety Report 12768711 (Version 1)
Quarter: 2016Q3

REPORT INFORMATION
  Report Type: Spontaneous
  Country: US (occurrence: US)
  Receive Date: 20160921
  Receipt Date: 20160921
  Transmission Date: 20161109
  Serious: No
  Sender: FDA-Public Use
  Company Number: US-JAZZ-2016-US-010132

PATIENT
  Age: 37 Year
  Sex: Male

DRUGS (10)
  1. XYREM [Suspect]
     Active Substance: SODIUM OXYBATE
     Dosage: 3.75 G, BID
     Route: 048
     Dates: start: 201605
  2. GNC MEGA MAN [Concomitant]
  3. XYREM [Suspect]
     Active Substance: SODIUM OXYBATE
     Indication: NARCOLEPSY
     Dosage: 2.25 G, BID
     Route: 048
     Dates: start: 201605, end: 201605
  4. FISH OIL CONCENTRATE [Concomitant]
  5. MOTRIN IB [Concomitant]
     Active Substance: IBUPROFEN
  6. CLARITIN [Concomitant]
     Active Substance: LORATADINE
  7. ZINC [Concomitant]
     Active Substance: ZINC\ZINC CHLORIDE
  8. PROVIGIL [Concomitant]
     Active Substance: MODAFINIL
  9. TYLENOL [Concomitant]
     Active Substance: ACETAMINOPHEN
  10. VITAMIN C TR [Concomitant]

REACTIONS (3)
  - Somnolence [Not Recovered/Not Resolved]
  - Asthenia [Not Recovered/Not Resolved]
  - Gastrointestinal sounds abnormal [Not Recovered/Not Resolved]

NARRATIVE: CASE EVENT DATE: 201605
